FAERS Safety Report 11204945 (Version 2)
Quarter: 2015Q3

REPORT INFORMATION
  Report Type: Report from Study
  Country: US (occurrence: US)
  Receive Date: 20150622
  Receipt Date: 20150824
  Transmission Date: 20151125
  Serious: Yes (Death, Hospitalization, Other)
  Sender: FDA-Public Use
  Company Number: US-GILEAD-2015-0159385

PATIENT
  Age: 65 Year
  Sex: Male

DRUGS (16)
  1. ADCIRCA [Suspect]
     Active Substance: TADALAFIL
     Indication: PRODUCT USED FOR UNKNOWN INDICATION
     Route: 065
  2. POTASSIUM [Concomitant]
     Active Substance: POTASSIUM
  3. SPIRIVA [Concomitant]
     Active Substance: TIOTROPIUM BROMIDE MONOHYDRATE
  4. ADVAIR HFA [Concomitant]
     Active Substance: FLUTICASONE PROPIONATE\SALMETEROL XINAFOATE
  5. METOPROLOL                         /00376902/ [Concomitant]
     Active Substance: METOPROLOL
  6. AMBRISENTAN [Suspect]
     Active Substance: AMBRISENTAN
     Indication: PULMONARY ARTERIAL HYPERTENSION
     Dosage: 10 MG, UNK
     Route: 065
     Dates: start: 20130401, end: 20150616
  7. ORENITRAM [Suspect]
     Active Substance: TREPROSTINIL
     Indication: PRODUCT USED FOR UNKNOWN INDICATION
     Route: 065
  8. GLUCOPHAGE [Concomitant]
     Active Substance: METFORMIN HYDROCHLORIDE
  9. WARFARIN [Concomitant]
     Active Substance: WARFARIN
  10. FLUTICASONE [Concomitant]
     Active Substance: FLUTICASONE\FLUTICASONE PROPIONATE
  11. DIGOXIN. [Concomitant]
     Active Substance: DIGOXIN
  12. OMEPRAZOLE. [Concomitant]
     Active Substance: OMEPRAZOLE
  13. PREDNISONE. [Concomitant]
     Active Substance: PREDNISONE
  14. SIMVASTATIN. [Concomitant]
     Active Substance: SIMVASTATIN
  15. TORSEMIDE. [Concomitant]
     Active Substance: TORSEMIDE
  16. CLARITIN [Concomitant]
     Active Substance: LORATADINE

REACTIONS (2)
  - Sepsis [Fatal]
  - Cardiac failure [Fatal]

NARRATIVE: CASE EVENT DATE: 20150615
